FAERS Safety Report 4341639-1 (Version None)
Quarter: 2004Q2

REPORT INFORMATION
  Report Type: 
  Country: None (occurrence: None)
  Receive Date: 20040420
  Receipt Date: 20040308
  Transmission Date: 20050107
  Serious: Yes (Death, Hospitalization)
  Sender: FDA-Public Use
  Company Number: CA-ROCHE-360976

PATIENT
  Age: 83 Year
  Sex: Female
  Weight: 70 kg

DRUGS (9)
  1. CAPECITABINE [Suspect]
     Indication: COLORECTAL CANCER
     Dosage: INTERMITTENT THERAPY OF 14 DAYS TREATMENT, FOLLOWED BY 7 DAYS REST.
     Route: 048
     Dates: start: 20040228, end: 20040304
  2. SINGULAIR [Concomitant]
     Dates: start: 19980615, end: 20040402
  3. VENTOLIN [Concomitant]
     Dates: start: 19980615, end: 20040315
  4. THYROID TAB [Concomitant]
     Dates: start: 19640615, end: 20040402
  5. LOPERAMIDE HCL [Concomitant]
     Dates: start: 20040206, end: 20040315
  6. ALTACE [Concomitant]
     Dates: start: 20031015, end: 20040315
  7. IBUPROFEN [Concomitant]
     Dates: start: 20040217, end: 20040315
  8. SULCRATE [Concomitant]
     Dates: start: 20040206, end: 20040315
  9. PROCHLORPERAZINE [Concomitant]
     Dates: start: 20040206, end: 20040315

REACTIONS (1)
  - PNEUMONIA [None]
